FAERS Safety Report 15812850 (Version 1)
Quarter: 2019Q1

REPORT INFORMATION
  Report Type: Spontaneous
  Country: US (occurrence: US)
  Receive Date: 20190111
  Receipt Date: 20190111
  Transmission Date: 20190417
  Serious: No
  Sender: FDA-Public Use
  Company Number: None

PATIENT
  Age: 30 Year
  Sex: Male

DRUGS (2)
  1. FEELIN^ GROOVY KRATOM [Suspect]
     Active Substance: HERBALS\MITRAGYNINE
     Indication: DEPRESSION
  2. FEELIN^ GROOVY KRATOM [Suspect]
     Active Substance: HERBALS\MITRAGYNINE
     Indication: PAIN
     Route: 048

REACTIONS (3)
  - Product advertising issue [None]
  - Product use in unapproved indication [None]
  - Malaise [None]
